FAERS Safety Report 16004112 (Version 3)
Quarter: 2019Q1

REPORT INFORMATION
  Report Type: Spontaneous
  Country: US (occurrence: US)
  Receive Date: 20190226
  Receipt Date: 20190325
  Transmission Date: 20190418
  Serious: Yes (Hospitalization, Other)
  Sender: FDA-Public Use
  Company Number: US-SA-2019SA050986

PATIENT
  Age: 49 Year
  Sex: Female

DRUGS (10)
  1. ALEMTUZUMAB [Suspect]
     Active Substance: ALEMTUZUMAB
     Indication: RELAPSING-REMITTING MULTIPLE SCLEROSIS
     Dosage: UNK, INFUSION
     Route: 041
  2. ZOLMITRIPTAN. [Concomitant]
     Active Substance: ZOLMITRIPTAN
  3. SOLIFENACIN SUCCINATE. [Concomitant]
     Active Substance: SOLIFENACIN SUCCINATE
  4. IBUPROFEN. [Concomitant]
     Active Substance: IBUPROFEN
  5. AMANTADINE. [Concomitant]
     Active Substance: AMANTADINE HYDROCHLORIDE
  6. SUMATRIPTAN. [Concomitant]
     Active Substance: SUMATRIPTAN
  7. LEVOTHYROXINE. [Concomitant]
     Active Substance: LEVOTHYROXINE
  8. TIZANIDINE. [Concomitant]
     Active Substance: TIZANIDINE
  9. BACLOFEN. [Concomitant]
     Active Substance: BACLOFEN
  10. PAROXETINE. [Concomitant]
     Active Substance: PAROXETINE

REACTIONS (13)
  - Somnolence [Unknown]
  - Headache [Unknown]
  - Neurologic neglect syndrome [Unknown]
  - Thrombocytopenia [Unknown]
  - Unresponsive to stimuli [Unknown]
  - Hydrocephalus [Unknown]
  - Affective disorder [Unknown]
  - Condition aggravated [Recovered/Resolved]
  - Vomiting [Unknown]
  - Blood pressure increased [Unknown]
  - Haemorrhage intracranial [Unknown]
  - Hemiparesis [Unknown]
  - Migraine [Recovered/Resolved]
